FAERS Safety Report 6547972-7 (Version None)
Quarter: 2010Q1

REPORT INFORMATION
  Report Type: 
  Country: None (occurrence: None)
  Receive Date: 20100124
  Receipt Date: 20091204
  Transmission Date: 20100710
  Serious: No
  Sender: FDA-Public Use
  Company Number: US-ALEXION-A200901053

PATIENT
  Sex: Female

DRUGS (18)
  1. SOLIRIS [Suspect]
     Dosage: 600 MG, QW
     Route: 042
     Dates: start: 20090507
  2. SOLIRIS [Suspect]
     Dosage: 900 MG, Q2WK
     Route: 042
     Dates: start: 20090605
  3. ALENDRONATE SODIUM [Concomitant]
     Dosage: 70 MG, QW
  4. SYNTHROID [Concomitant]
     Dosage: 75 UG, QD
  5. ENALAPRIL MALEATE [Concomitant]
     Dosage: 10 MG, QD
  6. HYDROCHLOROTHIAZIDE [Concomitant]
     Dosage: 25 MG, BID
  7. METOPROLOL TARTRATE [Concomitant]
     Dosage: 50 MG, BID
  8. FOLIC ACID [Concomitant]
     Dosage: 1 MG, QD
  9. CYCLOBENZAPRINE [Concomitant]
     Dosage: 10 MG, BID
  10. FERROUS SULFATE TAB [Concomitant]
     Dosage: 325 MG, BID
  11. PREDNISONE [Concomitant]
     Dosage: 5 MG, QD
  12. ASPIRIN [Concomitant]
     Dosage: 81 MG, QD
  13. OMEPRAZOLE [Concomitant]
     Dosage: 20 MG, QD
  14. HYDROCODONE BITARTRATE AND ACETAMINOPHEN [Concomitant]
     Dosage: 5/500 TAB, PRN
  15. BUMETANIDE [Concomitant]
     Dosage: 1 MG, QD
  16. VITAMIN A [Concomitant]
     Dosage: UNK
  17. CALCIUM [Concomitant]
  18. VITAMIN B12                        /00056201/ [Concomitant]
     Dosage: INJECTION

REACTIONS (7)
  - ERYTHEMA [None]
  - FEELING HOT [None]
  - LOCAL SWELLING [None]
  - PRURITUS [None]
  - THROMBOSIS [None]
  - VASCULITIS [None]
  - VOMITING [None]
